FAERS Safety Report 11923063 (Version 2)
Quarter: 2016Q1

REPORT INFORMATION
  Report Type: Report from Study
  Country: US (occurrence: US)
  Receive Date: 20160117
  Receipt Date: 20160310
  Transmission Date: 20160526
  Serious: Yes (Death, Hospitalization)
  Sender: FDA-Public Use
  Company Number: US-TAIHO ONCOLOGY INC-EU-2016-00032

PATIENT
  Age: 40 Year
  Sex: Male
  Weight: 65.3 kg

DRUGS (1)
  1. LONSURF [Suspect]
     Active Substance: TIPIRACIL HYDROCHLORIDE\TRIFLURIDINE
     Indication: COLON CANCER
     Dosage: CYCLE UNKNOWN
     Route: 048
     Dates: start: 20151021

REACTIONS (8)
  - Dysphagia [Unknown]
  - Vomiting [Unknown]
  - Disease progression [Fatal]
  - Nausea [Unknown]
  - Non-cardiac chest pain [Unknown]
  - Tumour pain [Unknown]
  - Jaundice [Unknown]
  - Decreased appetite [Unknown]

NARRATIVE: CASE EVENT DATE: 20151203
